FAERS Safety Report 9372750 (Version 1)
Quarter: 2013Q2

REPORT INFORMATION
  Report Type: Report from Study
  Country: US (occurrence: US)
  Receive Date: 20130627
  Receipt Date: 20130627
  Transmission Date: 20140414
  Serious: Yes (Death)
  Sender: FDA-Public Use
  Company Number: US-MYLANLABS-2013S1007449

PATIENT
  Age: 58 Year
  Sex: Male
  Weight: 88 kg

DRUGS (11)
  1. CLOZAPINE TABLETS [Suspect]
     Indication: SCHIZOPHRENIA
     Route: 048
  2. ATIVAN [Concomitant]
  3. BUSPAR [Concomitant]
  4. LEXAPRO [Concomitant]
  5. DITROPAN [Concomitant]
  6. LIPITOR [Concomitant]
  7. ASA [Concomitant]
  8. NORVASC [Concomitant]
  9. LISINOPRIL [Concomitant]
  10. PRILOSEC [Concomitant]
  11. MVI [Concomitant]

REACTIONS (1)
  - Death [None]
